FAERS Safety Report 14121343 (Version 3)
Quarter: 2017Q4

REPORT INFORMATION
  Report Type: Spontaneous
  Country: US (occurrence: US)
  Receive Date: 20171024
  Receipt Date: 20171215
  Transmission Date: 20180321
  Serious: Yes (Other)
  Sender: FDA-Public Use
  Company Number: US-ASTRAZENECA-2017SF07634

PATIENT
  Age: 23142 Day
  Sex: Male

DRUGS (3)
  1. PREDNISONE. [Concomitant]
     Active Substance: PREDNISONE
  2. BYDUREON [Suspect]
     Active Substance: EXENATIDE
     Indication: DIABETES MELLITUS
     Route: 065
     Dates: start: 201706
  3. BYDUREON [Suspect]
     Active Substance: EXENATIDE
     Indication: GLYCOSYLATED HAEMOGLOBIN INCREASED
     Route: 065
     Dates: start: 201706

REACTIONS (13)
  - Decreased appetite [Unknown]
  - Pancreatitis [Unknown]
  - Dry throat [Unknown]
  - Injection site cyst [Unknown]
  - Injection site nodule [Unknown]
  - Injection site haematoma [Unknown]
  - Underdose [Unknown]
  - Device malfunction [Unknown]
  - Abdominal discomfort [Not Recovered/Not Resolved]
  - Nausea [Unknown]
  - Injection site extravasation [Unknown]
  - Wrong technique in product usage process [Unknown]
  - Vomiting [Unknown]

NARRATIVE: CASE EVENT DATE: 20171017
